FAERS Safety Report 9318023 (Version 1)
Quarter: 2013Q2

REPORT INFORMATION
  Report Type: Spontaneous
  Country: US (occurrence: US)
  Receive Date: 20130530
  Receipt Date: 20130530
  Transmission Date: 20140414
  Serious: No
  Sender: FDA-Public Use
  Company Number: US-GLAXOSMITHKLINE-A1000771A

PATIENT
  Age: 61 Year
  Sex: Female

DRUGS (5)
  1. VENTOLIN HFA [Suspect]
     Indication: COUGH
     Dosage: 90MCG AS REQUIRED
     Route: 055
     Dates: start: 201201, end: 201201
  2. ZANTAC [Concomitant]
  3. ZOFRAN [Concomitant]
  4. TYLENOL # 3 [Concomitant]
  5. ADVAIR [Concomitant]

REACTIONS (2)
  - Palpitations [Recovered/Resolved]
  - Feeling abnormal [Recovered/Resolved]
